FAERS Safety Report 17572274 (Version 1)
Quarter: 2020Q1

REPORT INFORMATION
  Report Type: Other
  Country: CA (occurrence: CA)
  Receive Date: 20200323
  Receipt Date: 20200323
  Transmission Date: 20200409
  Serious: Yes (Hospitalization, Other)
  Sender: FDA-Public Use
  Company Number: CA-APOTEX-2020AP008854

PATIENT
  Age: 39 Year
  Sex: Female

DRUGS (4)
  1. NAPROXEN. [Concomitant]
     Active Substance: NAPROXEN
     Indication: PRODUCT USED FOR UNKNOWN INDICATION
     Dosage: 500 MG, BID, (THERAPY DURATION-365 UNIT UNKNOWN)
     Route: 048
  2. ETANERCEPT [Suspect]
     Active Substance: ETANERCEPT
     Indication: ANKYLOSING SPONDYLITIS
     Dosage: 50 MG, Q.WK.
     Route: 058
  3. CELEBREX [Concomitant]
     Active Substance: CELECOXIB
     Indication: PRODUCT USED FOR UNKNOWN INDICATION
     Dosage: 1 DF, BID, (THERAPY DURATION-366 UNIT UNKNOWN)
     Route: 048
  4. DICLOFENAC [Suspect]
     Active Substance: DICLOFENAC
     Indication: ANKYLOSING SPONDYLITIS
     Dosage: 1 DF, BID
     Route: 048

REACTIONS (15)
  - Dehydration [Unknown]
  - Ear pain [Unknown]
  - Influenza [Unknown]
  - Nasopharyngitis [Unknown]
  - Injection site pain [Unknown]
  - Productive cough [Unknown]
  - Pyrexia [Unknown]
  - Oropharyngeal pain [Unknown]
  - Anxiety [Unknown]
  - Fatigue [Unknown]
  - Diarrhoea [Unknown]
  - Ankylosing spondylitis [Unknown]
  - Bronchitis [Unknown]
  - Mucosal discolouration [Unknown]
  - Dyspnoea [Unknown]
